FAERS Safety Report 9538278 (Version 2)
Quarter: 2015Q3

REPORT INFORMATION
  Report Type: Report from Study
  Country: US (occurrence: US)
  Receive Date: 20130920
  Receipt Date: 20150908
  Transmission Date: 20151125
  Serious: Yes (Life-Threatening, Other)
  Sender: FDA-Public Use
  Company Number: US-009507513-1309USA004845

PATIENT

DRUGS (2)
  1. PLASMINOGEN (AS DRUG) [Suspect]
     Active Substance: PLASMINOGEN
     Indication: ISCHAEMIC STROKE
     Dosage: 0.6 MG/KG, UNK
     Route: 042
  2. INTEGRILIN [Suspect]
     Active Substance: EPTIFIBATIDE
     Indication: ISCHAEMIC STROKE
     Dosage: 135 MCG/KG BOLUS FOLLOWED BY A 2-HOUR INFUSION AT 0.75 MCG/KG PER MINUTE

REACTIONS (1)
  - Cerebral haemorrhage [Unknown]
